FAERS Safety Report 5090057-X (Version None)
Quarter: 2006Q3

REPORT INFORMATION
  Report Type: 
  Country: None (occurrence: None)
  Receive Date: 20060828
  Receipt Date: 20060817
  Transmission Date: 20061208
  Serious: Yes (Other)
  Sender: FDA-Public Use
  Company Number: PHFR2006GB02605

PATIENT
  Sex: Female

DRUGS (2)
  1. ZOMETA [Suspect]
     Route: 065
  2. PAMIDRONATE DISODIUM [Concomitant]

REACTIONS (2)
  - DENTAL TREATMENT [None]
  - OSTEONECROSIS [None]
